FAERS Safety Report 6453026-0 (Version None)
Quarter: 2009Q4

REPORT INFORMATION
  Report Type: 
  Country: None (occurrence: None)
  Receive Date: 20091124
  Receipt Date: 20090811
  Transmission Date: 20100525
  Serious: No
  Sender: FDA-Public Use
  Company Number: US-ABBOTT-09P-163-0590970-00

PATIENT
  Sex: Male
  Weight: 99.88 kg

DRUGS (11)
  1. TRICOR [Suspect]
     Indication: BLOOD TRIGLYCERIDES INCREASED
     Dates: start: 20090601
  2. SIMAVASTATIN [Concomitant]
     Indication: BLOOD CHOLESTEROL INCREASED
  3. COUMADIN [Concomitant]
     Indication: HEART RATE IRREGULAR
  4. TOPROL-XL [Concomitant]
     Indication: HEART RATE IRREGULAR
  5. TOPROL-XL [Concomitant]
     Indication: HYPERTENSION
  6. DIOVAN [Concomitant]
     Indication: HYPERTENSION
  7. VITAMINS [Concomitant]
     Indication: ROUTINE HEALTH MAINTENANCE
  8. LASIX [Concomitant]
     Indication: HYPERTENSION
  9. SYNTHROID [Concomitant]
     Indication: HYPOTHYROIDISM
  10. FLOMAX [Concomitant]
     Indication: URINARY TRACT DISORDER
  11. KLOR-CON [Concomitant]
     Indication: ELECTROLYTE SUBSTITUTION THERAPY

REACTIONS (1)
  - GASTROINTESTINAL DISORDER [None]
